FAERS Safety Report 7151575-3 (Version None)
Quarter: 2010Q4

REPORT INFORMATION
  Report Type: 
  Country: None (occurrence: None)
  Receive Date: 20101210
  Receipt Date: 20101207
  Transmission Date: 20110411
  Serious: Yes (Hospitalization)
  Sender: FDA-Public Use
  Company Number: US-PFIZER INC-2009210438

PATIENT
  Age: 63 Year
  Sex: Male
  Weight: 72 kg

DRUGS (6)
  1. BLINDED *NO SUBJECT DRUG [Suspect]
     Indication: RENAL CELL CARCINOMA
     Dosage: 12.5 MG, 4X/DAY
     Route: 048
     Dates: start: 20090226, end: 20090316
  2. PLACEBO [Suspect]
     Indication: RENAL CELL CARCINOMA
     Dosage: 12.5 MG, 4X/DAY
     Route: 048
     Dates: start: 20090226, end: 20090316
  3. BLINDED *SORAFENIB [Suspect]
     Indication: RENAL CELL CARCINOMA
     Dosage: 12.5 MG, 4X/DAY
     Route: 048
     Dates: start: 20090226, end: 20090316
  4. SUNITINIB MALATE [Suspect]
     Indication: RENAL CELL CARCINOMA
     Dosage: 12.5 MG, 4X/DAY
     Route: 048
     Dates: start: 20090226, end: 20090316
  5. METFORMIN [Concomitant]
  6. PERCOCET [Concomitant]

REACTIONS (5)
  - ABSCESS INTESTINAL [None]
  - GASTROINTESTINAL FISTULA [None]
  - HYPOTENSION [None]
  - PANCYTOPENIA [None]
  - THROMBOCYTOPENIA [None]
